FAERS Safety Report 8091056-6 (Version None)
Quarter: 2012Q1

REPORT INFORMATION
  Report Type: 
  Country: None (occurrence: None)
  Receive Date: 20120131
  Receipt Date: 20120120
  Transmission Date: 20120608
  Serious: Yes (Hospitalization)
  Sender: FDA-Public Use
  Company Number: CA-SHIRE-ALL1-2012-00332

PATIENT
  Sex: Male
  Weight: 27.5 kg

DRUGS (2)
  1. IDURSULFASE [Suspect]
     Indication: MUCOPOLYSACCHARIDOSIS II
     Dosage: UNK UNK, 1X/WEEK
     Route: 041
     Dates: start: 20080813
  2. UNSPECIFIED MEDICATION [Concomitant]
     Indication: PREMEDICATION
     Dosage: UNK, UNKNOWN
     Route: 065

REACTIONS (3)
  - INCREASED UPPER AIRWAY SECRETION [None]
  - CHOKING [None]
  - COUGH [None]
